FAERS Safety Report 11591702 (Version 1)
Quarter: 2015Q4

REPORT INFORMATION
  Report Type: Spontaneous
  Country: AU (occurrence: AU)
  Receive Date: 20151005
  Receipt Date: 20151005
  Transmission Date: 20160304
  Serious: No
  Sender: FDA-Public Use
  Company Number: AU-NOVEN PHARMACEUTICALS, INC.-AU2015000463

PATIENT
  Sex: Female

DRUGS (1)
  1. ESTRADIOL/NORETHISTERONE ACETATE [Suspect]
     Active Substance: ESTRADIOL\NORETHINDRONE ACETATE
     Indication: PRODUCT USED FOR UNKNOWN INDICATION
     Dosage: 1 DF, 3.5 DAYS
     Route: 062

REACTIONS (6)
  - Abdominal pain [Unknown]
  - Dysmenorrhoea [Recovered/Resolved]
  - Cognitive disorder [Recovering/Resolving]
  - Sleep disorder [Recovering/Resolving]
  - Mental disorder [Recovering/Resolving]
  - Depressed mood [Unknown]
